FAERS Safety Report 7012346-1 (Version None)
Quarter: 2010Q3

REPORT INFORMATION
  Report Type: 
  Country: None (occurrence: None)
  Receive Date: 20100924
  Receipt Date: 20100910
  Transmission Date: 20110219
  Serious: Yes (Hospitalization)
  Sender: FDA-Public Use
  Company Number: US-SANOFI-AVENTIS-2010SA056847

PATIENT
  Age: 86 Year
  Sex: Female
  Weight: 65 kg

DRUGS (10)
  1. ARAVA [Suspect]
     Indication: RHEUMATOID ARTHRITIS
     Dosage: 100 MG/DAY FOR THREE DAYS FOLLOWED BY MAINTENANCE DOSE OF 10 MG DAILY FOR RHEUMATOID ARTHRITIS
     Route: 048
     Dates: start: 20030731, end: 20030802
  2. METHOTREXATE [Suspect]
     Indication: RHEUMATOID ARTHRITIS
     Route: 048
     Dates: start: 20020529, end: 20030812
  3. METHOTREXATE [Suspect]
     Indication: PSORIASIS
     Route: 048
     Dates: start: 20020529, end: 20030812
  4. FOLIC ACID [Concomitant]
     Indication: RHEUMATOID ARTHRITIS
     Route: 048
     Dates: start: 20020529, end: 20030812
  5. CLINORIL [Concomitant]
     Indication: RHEUMATOID ARTHRITIS
     Route: 048
  6. PREMARIN [Concomitant]
     Indication: POSTMENOPAUSE
     Dosage: 1.25 MG ON MONDAY, WEDNESDAY, AND FRIDAY
     Dates: start: 20020529, end: 20030812
  7. HUMULIN N [Concomitant]
     Dosage: DOSE:20 UNIT(S)
     Route: 058
     Dates: start: 20020529
  8. CALCIUM CARBONATE [Concomitant]
     Dates: start: 20020529
  9. GLUCOSAMINE [Concomitant]
     Dates: start: 20020529
  10. MULTI-VITAMINS [Concomitant]
     Route: 048
     Dates: start: 20020529

REACTIONS (9)
  - ABDOMINAL TENDERNESS [None]
  - BLOOD ALKALINE PHOSPHATASE INCREASED [None]
  - BLOOD BILIRUBIN INCREASED [None]
  - CHOLELITHIASIS [None]
  - CHROMATURIA [None]
  - FAECES PALE [None]
  - FATIGUE [None]
  - JAUNDICE CHOLESTATIC [None]
  - VOMITING PROJECTILE [None]
